FAERS Safety Report 17401572 (Version 1)
Quarter: 2020Q1

REPORT INFORMATION
  Report Type: Spontaneous
  Country: US (occurrence: US)
  Receive Date: 20200211
  Receipt Date: 20200211
  Transmission Date: 20200409
  Serious: Yes (Other)
  Sender: FDA-Public Use
  Company Number: US-SCIEGEN PHARMACEUTICALS INC-2020SCISPO00033

PATIENT

DRUGS (1)
  1. BUPROPION HYDROCHLORIDE EXTENDED-RELEASE TABLETS USP (SR), 150 MG [Suspect]
     Active Substance: BUPROPION HYDROCHLORIDE

REACTIONS (10)
  - Tinnitus [Unknown]
  - Cognitive disorder [Unknown]
  - Balance disorder [Unknown]
  - Malaise [Unknown]
  - Unevaluable event [Unknown]
  - Decreased activity [Unknown]
  - Product odour abnormal [Unknown]
  - Dizziness [Unknown]
  - Syncope [Unknown]
  - Neurological symptom [Unknown]
